FAERS Safety Report 6564521-8 (Version None)
Quarter: 2010Q1

REPORT INFORMATION
  Report Type: 
  Country: None (occurrence: None)
  Receive Date: 20100201
  Receipt Date: 20100119
  Transmission Date: 20100710
  Serious: Yes (Other)
  Sender: FDA-Public Use
  Company Number: US-ELI_LILLY_AND_COMPANY-US200910006045

PATIENT
  Sex: Female

DRUGS (4)
  1. FORTEO [Suspect]
     Dosage: UNK, UNK
     Dates: start: 20090501, end: 20090901
  2. LEVOTHROID [Concomitant]
  3. FISH OIL [Concomitant]
  4. CALCIUM                                 /N/A/ [Concomitant]

REACTIONS (1)
  - BREAST CANCER [None]
